FAERS Safety Report 10503974 (Version 1)
Quarter: 2014Q4

REPORT INFORMATION
  Report Type: Spontaneous
  Country: US (occurrence: None)
  Receive Date: 20141006
  Receipt Date: 20141006
  Transmission Date: 20150528
  Serious: Yes (Hospitalization)
  Sender: FDA-Public Use
  Company Number: UNT-2014-000962

PATIENT
  Age: 18 Year
  Sex: Male
  Weight: 52.2 kg

DRUGS (4)
  1. TYVASO [Suspect]
     Active Substance: TREPROSTINIL
     Indication: PULMONARY ARTERIAL HYPERTENSION
     Route: 055
     Dates: start: 20140516
  2. TYVASO [Suspect]
     Active Substance: TREPROSTINIL
     Route: 055
     Dates: start: 20140516
  3. LETAIRIS [Suspect]
     Active Substance: AMBRISENTAN
     Indication: INTERSTITIAL LUNG DISEASE
     Dates: start: 20140108
  4. LETAIRIS [Suspect]
     Active Substance: AMBRISENTAN
     Indication: PULMONARY ARTERIAL HYPERTENSION
     Dates: start: 20140108

REACTIONS (11)
  - Chest pain [None]
  - Nausea [None]
  - Fatigue [None]
  - Presyncope [None]
  - Abdominal pain [None]
  - Blood pressure decreased [None]
  - Dizziness [None]
  - Inflammation [None]
  - Pruritus [None]
  - Cough [None]
  - Chest discomfort [None]

NARRATIVE: CASE EVENT DATE: 201405
